FAERS Safety Report 7974306 (Version 6)
Quarter: 2012Q4

REPORT INFORMATION
  Report Type: 
  Country: US (occurrence: US)
  Receive Date: 20110603
  Receipt Date: 20121119
  Transmission Date: 20130627
  Serious: Yes (Other)
  Sender: FDA-Public Use
  Company Number: US-ASTRAZENECA-2010SE61173

PATIENT
  Age: 63 Year
  Sex: Female

DRUGS (6)
  1. ARIMIDEX [Suspect]
     Route: 048
  2. SYMBICORT [Suspect]
     Indication: CHRONIC OBSTRUCTIVE PULMONARY DISEASE
     Dosage: 160/4.5 MCGS 2, BID
     Route: 055
     Dates: start: 200902, end: 201011
  3. SYMBICORT [Suspect]
     Indication: ASTHMA
     Dosage: 160/4.5 MCGS 2, BID
     Route: 055
     Dates: start: 200902, end: 201011
  4. METOPROLOL [Concomitant]
     Route: 048
  5. PROZAC [Concomitant]
  6. ANXIETY MEDICATION [Concomitant]
     Dosage: PRN

REACTIONS (11)
  - Breast cancer female [Unknown]
  - Neoplasm malignant [Unknown]
  - Malignant neoplasm of spinal cord [Unknown]
  - Dyspnoea [Unknown]
  - Malaise [Unknown]
  - Malaise [Unknown]
  - Vomiting [Unknown]
  - Fatigue [Unknown]
  - Influenza [Unknown]
  - Drug dose omission [Unknown]
  - Intentional drug misuse [Unknown]
